FAERS Safety Report 8465377-9 (Version None)
Quarter: 2012Q2

REPORT INFORMATION
  Report Type: 
  Country: None (occurrence: None)
  Receive Date: 20120626
  Receipt Date: 20120612
  Transmission Date: 20120825
  Serious: Yes (Other)
  Sender: FDA-Public Use
  Company Number: JP-PFIZER INC-2012138371

PATIENT
  Sex: Female

DRUGS (3)
  1. LIPITOR [Suspect]
     Dosage: 10 MG, DAILY
     Route: 048
  2. LIPITOR [Suspect]
     Dosage: 10 MG, DAILY
     Route: 048
  3. LEVOTHYROXINE SODIUM [Concomitant]
     Dosage: UNK

REACTIONS (3)
  - NEPHROTIC SYNDROME [None]
  - BLOOD CREATININE INCREASED [None]
  - LOW DENSITY LIPOPROTEIN INCREASED [None]
